FAERS Safety Report 9162084 (Version 1)
Quarter: 2013Q1

REPORT INFORMATION
  Report Type: Spontaneous
  Country: US (occurrence: None)
  Receive Date: 20130220
  Receipt Date: 20130220
  Transmission Date: 20140127
  Serious: Yes (Hospitalization)
  Sender: FDA-Public Use
  Company Number: ACO_34291_2013

PATIENT
  Age: 29 Year
  Sex: Female
  Weight: 61.2 kg

DRUGS (1)
  1. AMPYRA (DALFAMPRIDINE) TABLET, 10MG [Suspect]
     Indication: GAIT DISTURBANCE
     Dates: start: 201207, end: 201211

REACTIONS (2)
  - Vomiting [None]
  - Diarrhoea [None]
